FAERS Safety Report 10101578 (Version 1)
Quarter: 2014Q2

REPORT INFORMATION
  Report Type: Spontaneous
  Country: US (occurrence: US)
  Receive Date: 20140424
  Receipt Date: 20140424
  Transmission Date: 20141212
  Serious: Yes (Death)
  Sender: FDA-Public Use
  Company Number: US-JNJFOC-20140415351

PATIENT
  Sex: 0

DRUGS (56)
  1. VINCRISTINE [Suspect]
     Indication: BURKITT^S LYMPHOMA
     Dosage: 1 DAY, CYCLE LENGTH 21 DAYS
     Route: 042
  2. VINCRISTINE [Suspect]
     Indication: BURKITT^S LYMPHOMA
     Dosage: 1 DAY, CYCLE LENGTH 21 DAYS
     Route: 042
  3. VINCRISTINE [Suspect]
     Indication: BURKITT^S LEUKAEMIA
     Dosage: 1 DAY, CYCLE LENGTH 21 DAYS
     Route: 042
  4. VINCRISTINE [Suspect]
     Indication: BURKITT^S LEUKAEMIA
     Dosage: 1 DAY, CYCLE LENGTH 21 DAYS
     Route: 042
  5. DEXAMETHASONE [Suspect]
     Indication: BURKITT^S LYMPHOMA
     Route: 042
  6. DEXAMETHASONE [Suspect]
     Indication: BURKITT^S LYMPHOMA
     Dosage: 1-5 DAYS, CYCLE LENGTH 21 DAYS
     Route: 042
  7. DEXAMETHASONE [Suspect]
     Indication: BURKITT^S LEUKAEMIA
     Route: 042
  8. DEXAMETHASONE [Suspect]
     Indication: BURKITT^S LEUKAEMIA
     Dosage: 1-5 DAYS, CYCLE LENGTH 21 DAYS
     Route: 042
  9. RITUXIMAB [Suspect]
     Indication: BURKITT^S LYMPHOMA
     Dosage: CYCLES 3-7, DAY 8 OF EACH CYCLE
     Route: 042
  10. RITUXIMAB [Suspect]
     Indication: BURKITT^S LYMPHOMA
     Dosage: 50 MG/M2 ON DAY 8 AND 375 MG/M2/D ON DAYS 10 AND 12
     Route: 042
  11. RITUXIMAB [Suspect]
     Indication: BURKITT^S LYMPHOMA
     Dosage: CYCLES 3-7, DAY 8 OF EACH CYCLE
     Route: 042
  12. RITUXIMAB [Suspect]
     Indication: BURKITT^S LYMPHOMA
     Dosage: 50 MG/M2 ON DAY 8 AND 375 MG/M2/D ON DAYS 10 AND 12
     Route: 042
  13. RITUXIMAB [Suspect]
     Indication: BURKITT^S LEUKAEMIA
     Dosage: CYCLES 3-7, DAY 8 OF EACH CYCLE
     Route: 042
  14. RITUXIMAB [Suspect]
     Indication: BURKITT^S LEUKAEMIA
     Dosage: 50 MG/M2 ON DAY 8 AND 375 MG/M2/D ON DAYS 10 AND 12
     Route: 042
  15. RITUXIMAB [Suspect]
     Indication: BURKITT^S LEUKAEMIA
     Dosage: 50 MG/M2 ON DAY 8 AND 375 MG/M2/D ON DAYS 10 AND 12
     Route: 042
  16. RITUXIMAB [Suspect]
     Indication: BURKITT^S LEUKAEMIA
     Dosage: CYCLES 3-7, DAY 8 OF EACH CYCLE
     Route: 042
  17. ALLOPURINOL [Suspect]
     Indication: BURKITT^S LYMPHOMA
     Dosage: 1-14 DAYS
     Route: 048
  18. ALLOPURINOL [Suspect]
     Indication: BURKITT^S LEUKAEMIA
     Dosage: 1-14 DAYS
     Route: 048
  19. MESNA [Suspect]
     Indication: BURKITT^S LYMPHOMA
     Dosage: 1-5 DAYS, CYCLE LENGTH 21 DAYS
     Route: 065
  20. MESNA [Suspect]
     Indication: BURKITT^S LEUKAEMIA
     Dosage: 1-5 DAYS, CYCLE LENGTH 21 DAYS
     Route: 065
  21. LEUCOVORIN [Suspect]
     Indication: PROPHYLAXIS
     Route: 042
  22. LEUCOVORIN [Suspect]
     Indication: PROPHYLAXIS
     Dosage: EVERY 6 HOURS UNTIL LEVEL {0.05 LMOL/L, 1 DAY, CYCLE LENGTH 21 DAYS
     Route: 042
  23. LEUCOVORIN [Suspect]
     Indication: PROPHYLAXIS
     Dosage: EVERY 6 HOURS UNTIL LEVEL {0.05 LMOL/L, 1 DAY, CYCLE LENGTH 21 DAYS
     Route: 042
  24. LEUCOVORIN [Suspect]
     Indication: PROPHYLAXIS
     Dosage: 50 MG/M2 36 HOURS AFTER INITIATION OF METHOTREXATE, 2 DAYS, CYCLE LENGTH 21 DAYS
     Route: 042
  25. CYTARABINE [Suspect]
     Indication: BURKITT^S LYMPHOMA
     Dosage: 4-5 DAYS, OVER 2 HOURS, CYCLE LENGTH 21 DAYS
     Route: 065
  26. CYTARABINE [Suspect]
     Indication: BURKITT^S LEUKAEMIA
     Dosage: 4-5 DAYS, OVER 2 HOURS, CYCLE LENGTH 21 DAYS
     Route: 065
  27. DOXORUBICIN [Suspect]
     Indication: BURKITT^S LYMPHOMA
     Route: 042
  28. DOXORUBICIN [Suspect]
     Indication: BURKITT^S LEUKAEMIA
     Route: 042
  29. CYCLOPHOSPHAMIDE [Suspect]
     Indication: BURKITT^S LYMPHOMA
     Dosage: 1-5 DAYS
     Route: 042
  30. CYCLOPHOSPHAMIDE [Suspect]
     Indication: BURKITT^S LYMPHOMA
     Route: 042
  31. CYCLOPHOSPHAMIDE [Suspect]
     Indication: BURKITT^S LEUKAEMIA
     Route: 042
  32. CYCLOPHOSPHAMIDE [Suspect]
     Indication: BURKITT^S LEUKAEMIA
     Dosage: 1-5 DAYS
     Route: 042
  33. PREDNISONE [Suspect]
     Indication: BURKITT^S LYMPHOMA
     Dosage: 1-7 DAYS
     Route: 065
  34. PREDNISONE [Suspect]
     Indication: BURKITT^S LEUKAEMIA
     Dosage: 1-7 DAYS
     Route: 065
  35. IFOSFAMIDE [Suspect]
     Indication: BURKITT^S LYMPHOMA
     Dosage: 1-5 DAYS, CYCLE LENGTH 21 DAYS
     Route: 042
  36. IFOSFAMIDE [Suspect]
     Indication: BURKITT^S LEUKAEMIA
     Dosage: 1-5 DAYS, CYCLE LENGTH 21 DAYS
     Route: 042
  37. METHOTREXATE [Suspect]
     Indication: BURKITT^S LYMPHOMA
     Dosage: 1 DAY, CYCLE LENGTH 21 DAYS
     Route: 042
  38. METHOTREXATE [Suspect]
     Indication: BURKITT^S LYMPHOMA
     Dosage: 1 DAY, CYCLE LENGTH 21 DAYS
     Route: 042
  39. METHOTREXATE [Suspect]
     Indication: BURKITT^S LYMPHOMA
     Dosage: 35 G/M2 OVER 23.5 HOURS, 1 DAY, CYCLE LENGTH 21 DAYS
     Route: 042
  40. METHOTREXATE [Suspect]
     Indication: BURKITT^S LYMPHOMA
     Dosage: 35 G/M2 OVER 23.5 HOURS, 1 DAY, CYCLE LENGTH 21 DAYS
     Route: 042
  41. METHOTREXATE [Suspect]
     Indication: BURKITT^S LEUKAEMIA
     Dosage: 1 DAY, CYCLE LENGTH 21 DAYS
     Route: 042
  42. METHOTREXATE [Suspect]
     Indication: BURKITT^S LEUKAEMIA
     Dosage: 35 G/M2 OVER 23.5 HOURS, 1 DAY, CYCLE LENGTH 21 DAYS
     Route: 042
  43. METHOTREXATE [Suspect]
     Indication: BURKITT^S LEUKAEMIA
     Dosage: 35 G/M2 OVER 23.5 HOURS, 1 DAY, CYCLE LENGTH 21 DAYS
     Route: 042
  44. METHOTREXATE [Suspect]
     Indication: BURKITT^S LEUKAEMIA
     Dosage: 1 DAY, CYCLE LENGTH 21 DAYS
     Route: 042
  45. ETOPOSIDE [Suspect]
     Indication: BURKITT^S LYMPHOMA
     Dosage: 4-5 DAYS, OVER 1 HOUR, CYCLE LENGTH 21 DAYS
     Route: 065
  46. ETOPOSIDE [Suspect]
     Indication: BURKITT^S LEUKAEMIA
     Dosage: 4-5 DAYS, OVER 1 HOUR, CYCLE LENGTH 21 DAYS
     Route: 065
  47. CYTARABINE [Suspect]
     Indication: BURKITT^S LYMPHOMA
     Route: 037
  48. CYTARABINE [Suspect]
     Indication: BURKITT^S LEUKAEMIA
     Route: 037
  49. HYDROCORTISONE [Suspect]
     Indication: BURKITT^S LYMPHOMA
     Route: 037
  50. HYDROCORTISONE [Suspect]
     Indication: BURKITT^S LEUKAEMIA
     Route: 037
  51. FILGRASTIM [Suspect]
     Indication: PROPHYLAXIS
     Route: 058
  52. FILGRASTIM [Suspect]
     Indication: PROPHYLAXIS
     Route: 058
  53. FILGRASTIM [Suspect]
     Indication: PROPHYLAXIS
     Route: 058
  54. FILGRASTIM [Suspect]
     Indication: PROPHYLAXIS
     Route: 058
  55. METHOTREXATE [Suspect]
     Indication: BURKITT^S LYMPHOMA
     Route: 037
  56. METHOTREXATE [Suspect]
     Indication: BURKITT^S LEUKAEMIA
     Route: 037

REACTIONS (1)
  - Respiratory failure [Fatal]
